FAERS Safety Report 8184982-0 (Version None)
Quarter: 2012Q1

REPORT INFORMATION
  Report Type: 
  Country: None (occurrence: None)
  Receive Date: 20120305
  Receipt Date: 20120227
  Transmission Date: 20120608
  Serious: Yes (Other)
  Sender: FDA-Public Use
  Company Number: JP-GLAXOSMITHKLINE-B0785328A

PATIENT
  Weight: 86 kg

DRUGS (2)
  1. PAXIL [Suspect]
     Dosage: 10MG PER DAY
     Route: 048
  2. PAXIL [Suspect]
     Indication: PRODUCT USED FOR UNKNOWN INDICATION
     Dosage: 20MG PER DAY
     Route: 048

REACTIONS (11)
  - HALLUCINATION, AUDITORY [None]
  - FEAR [None]
  - APATHY [None]
  - COGNITIVE DISORDER [None]
  - DEPRESSED MOOD [None]
  - ASTHENIA [None]
  - AGGRESSION [None]
  - ANXIETY [None]
  - LISTLESS [None]
  - AFFECT LABILITY [None]
  - DRUG WITHDRAWAL SYNDROME [None]
